FAERS Safety Report 8574475-0 (Version None)
Quarter: 2012Q3

REPORT INFORMATION
  Report Type: 
  Country: None (occurrence: None)
  Receive Date: 20120806
  Receipt Date: 20110831
  Transmission Date: 20120928
  Serious: No
  Sender: FDA-Public Use
  Company Number: US-ABBOTT-11P-163-0850608-00

PATIENT
  Sex: Male

DRUGS (2)
  1. CONCERTA [Concomitant]
     Indication: PRODUCT USED FOR UNKNOWN INDICATION
  2. DEPAKOTE ER [Suspect]
     Indication: IMPULSE-CONTROL DISORDER
     Dates: start: 20070301

REACTIONS (1)
  - THROMBOCYTOPENIA [None]
